FAERS Safety Report 14033105 (Version 1)
Quarter: 2017Q4

REPORT INFORMATION
  Report Type: Spontaneous
  Country: GB (occurrence: GB)
  Receive Date: 20171002
  Receipt Date: 20171002
  Transmission Date: 20180321
  Serious: Yes (Other)
  Sender: FDA-Public Use
  Company Number: GB-PFIZER INC-2017420913

PATIENT
  Age: 77 Year
  Sex: Female
  Weight: 109 kg

DRUGS (8)
  1. DOXYCYCLINE. [Concomitant]
     Active Substance: DOXYCYCLINE
     Dosage: TWO NOW, THEN ONE DAILY FOR 6 WEEKS
     Dates: start: 20160229, end: 20170828
  2. SERTRALINE [Concomitant]
     Active Substance: SERTRALINE HYDROCHLORIDE
     Dosage: 1 DF, 1X/DAY
     Dates: start: 20170504
  3. NOVOMIX [Concomitant]
     Active Substance: INSULIN ASPART
     Dosage: USE AS DIRECTED
     Dates: start: 20161017
  4. CIPROFLOXACIN. [Concomitant]
     Active Substance: CIPROFLOXACIN
     Dosage: 1 DF, 2X/DAY
     Dates: start: 20170717, end: 20170828
  5. PRAVASTATIN. [Concomitant]
     Active Substance: PRAVASTATIN
     Dosage: 1 DF, 1X/DAY, AT NIGHT
     Dates: start: 20150924, end: 20170731
  6. SODIUM FUSIDATE [Concomitant]
     Active Substance: FUSIDATE SODIUM
     Dosage: 2 DF, 3X/DAY
     Dates: start: 20160229
  7. ATORVASTATIN CALCIUM. [Suspect]
     Active Substance: ATORVASTATIN CALCIUM
     Dosage: UNK
     Dates: start: 20170824
  8. LOPERAMIDE [Concomitant]
     Active Substance: LOPERAMIDE
     Dosage: 1 DF, 1X/DAY
     Dates: start: 20170620

REACTIONS (3)
  - Arthralgia [Recovering/Resolving]
  - Rash vesicular [Unknown]
  - Blood glucose fluctuation [Unknown]

NARRATIVE: CASE EVENT DATE: 20170915
